FAERS Safety Report 12184600 (Version 2)
Quarter: 2016Q2

REPORT INFORMATION
  Report Type: Report from Study
  Country: US (occurrence: US)
  Receive Date: 20160316
  Receipt Date: 20160426
  Transmission Date: 20160815
  Serious: Yes (Hospitalization)
  Sender: FDA-Public Use
  Company Number: US-JNJFOC-20160314363

PATIENT
  Age: 54 Year
  Sex: Male
  Weight: 110 kg

DRUGS (1)
  1. IMBRUVICA [Suspect]
     Active Substance: IBRUTINIB
     Indication: MANTLE CELL LYMPHOMA
     Route: 048
     Dates: start: 20160203

REACTIONS (4)
  - Pericardial effusion [Recovering/Resolving]
  - Pericarditis [Recovering/Resolving]
  - Costochondritis [Unknown]
  - Oesophagitis [Unknown]

NARRATIVE: CASE EVENT DATE: 201602
